FAERS Safety Report 10432512 (Version 2)
Quarter: 2014Q3

REPORT INFORMATION
  Report Type: Spontaneous
  Country: CH (occurrence: CH)
  Receive Date: 20140905
  Receipt Date: 20140912
  Transmission Date: 20150326
  Serious: Yes (Hospitalization, Other)
  Sender: FDA-Public Use
  Company Number: CH-MERCK-1408CHE017275

PATIENT
  Age: 53 Year
  Sex: Female

DRUGS (7)
  1. REMERON [Suspect]
     Active Substance: MIRTAZAPINE
     Dosage: TOTAL DAILY DOSE 2700 MG, ONCE
     Route: 048
     Dates: start: 20140705, end: 20140705
  2. HYDROXYZINE [Suspect]
     Active Substance: HYDROXYZINE\HYDROXYZINE HYDROCHLORIDE
     Dosage: UNK
     Dates: start: 20140705, end: 20140705
  3. MEFENAMIC ACID. [Suspect]
     Active Substance: MEFENAMIC ACID
     Dosage: TOTAL DAILY DOSE 2500 MG , ONCE
     Route: 048
     Dates: start: 20140705, end: 20140705
  4. HALOPERIDOL. [Suspect]
     Active Substance: HALOPERIDOL
     Dosage: TOTAL DAILY DOSE 100MG, ONCE
     Route: 048
     Dates: start: 20140705, end: 20140705
  5. ZOLPIDEM TARTRATE. [Suspect]
     Active Substance: ZOLPIDEM TARTRATE
     Dosage: UNK
     Dates: start: 20140705, end: 20140705
  6. MEFENAMIC ACID. [Suspect]
     Active Substance: MEFENAMIC ACID
     Dosage: TOTAL DAILY DOSE 15 G, ONCE
     Route: 048
     Dates: start: 20140705, end: 20140705
  7. IBUPROFEN. [Suspect]
     Active Substance: IBUPROFEN
     Dosage: UNK
     Dates: start: 20140705, end: 20140705

REACTIONS (11)
  - Metabolic acidosis [Recovered/Resolved]
  - Amnesia [Recovered/Resolved]
  - Tachycardia [Recovered/Resolved]
  - Blood creatine phosphokinase increased [Recovered/Resolved]
  - Erythema [Recovered/Resolved]
  - Hypertension [Recovered/Resolved]
  - Mydriasis [Recovered/Resolved]
  - Blood creatinine increased [Recovering/Resolving]
  - Suicide attempt [Recovered/Resolved]
  - Aspartate aminotransferase increased [Recovering/Resolving]
  - Alanine aminotransferase increased [Recovering/Resolving]

NARRATIVE: CASE EVENT DATE: 20140705
